FAERS Safety Report 17013755 (Version 1)
Quarter: 2019Q4

REPORT INFORMATION
  Report Type: Spontaneous
  Country: US (occurrence: US)
  Receive Date: 20191110
  Receipt Date: 20191110
  Transmission Date: 20200122
  Serious: Yes (Other)
  Sender: FDA-Public Use
  Company Number: US-DENTSPLY-2019SCDP000616

PATIENT
  Age: 10 Year
  Sex: Male

DRUGS (5)
  1. LIDOCAINE. [Suspect]
     Active Substance: LIDOCAINE
     Indication: CARDIAC DISORDER
     Dosage: UNK
     Route: 042
  2. AMIODARONE [Suspect]
     Active Substance: AMIODARONE
     Indication: CARDIAC DISORDER
     Dosage: UNK
     Route: 042
  3. BIVALIRUDIN. [Concomitant]
     Active Substance: BIVALIRUDIN
     Indication: COAGULOPATHY
     Dosage: UNK
  4. COUMADIN [Concomitant]
     Active Substance: WARFARIN SODIUM
     Indication: COAGULOPATHY
     Dosage: UNK
  5. ASPIRIN ANALGESIC [Concomitant]
     Indication: COAGULOPATHY
     Dosage: UNK

REACTIONS (2)
  - Bradycardia [Unknown]
  - Ventricular arrhythmia [Unknown]
